FAERS Safety Report 18689075 (Version 1)
Quarter: 2020Q4

REPORT INFORMATION
  Report Type: Spontaneous
  Country: US (occurrence: US)
  Receive Date: 20201231
  Receipt Date: 20201231
  Transmission Date: 20210114
  Serious: Yes (Other)
  Sender: FDA-Public Use
  Company Number: US-BRISTOL-MYERS SQUIBB COMPANY-BMS-2020-111850

PATIENT
  Age: 58 Year
  Sex: Female

DRUGS (3)
  1. NIVOLUMAB [Suspect]
     Active Substance: NIVOLUMAB
     Indication: NEUROENDOCRINE TUMOUR
     Dosage: UNK
     Route: 065
  2. 3,4-DIAMINOPYRIDINE [Suspect]
     Active Substance: AMIFAMPRIDINE
     Indication: MYASTHENIC SYNDROME
  3. 3,4-DIAMINOPYRIDINE [Suspect]
     Active Substance: AMIFAMPRIDINE
     Indication: PROGRESSIVE CEREBELLAR DEGENERATION

REACTIONS (2)
  - Myasthenic syndrome [Unknown]
  - Nervous system disorder [Unknown]
